FAERS Safety Report 8861258 (Version 2)
Quarter: 2012Q4

REPORT INFORMATION
  Report Type: 
  Country: US (occurrence: US)
  Receive Date: 20121026
  Receipt Date: 20121126
  Transmission Date: 20130627
  Serious: Yes (Other)
  Sender: FDA-Public Use
  Company Number: US-PFIZER INC-2012266407

PATIENT
  Age: 50 Year
  Sex: Female
  Weight: 49.89 kg

DRUGS (14)
  1. ZOLOFT [Suspect]
     Indication: STRESS
     Dosage: UNK
  2. ZOLOFT [Suspect]
     Indication: ANXIETY DISORDER
  3. XANAX [Suspect]
     Indication: PANIC DISORDER
     Dosage: UNK
  4. ALPRAZOLAM [Suspect]
     Indication: STRESS
     Dosage: 1 mg, 4x/day, as needed
     Dates: start: 201210, end: 20121022
  5. ALPRAZOLAM [Suspect]
     Indication: ANXIETY DISORDER
  6. ALPRAZOLAM [Suspect]
     Indication: PANIC DISORDER
  7. ALPRAZOLAM [Suspect]
     Indication: PANIC DISORDER
  8. CELEXA [Suspect]
     Indication: STRESS
     Dosage: UNK
  9. CELEXA [Suspect]
     Indication: ANXIETY DISORDER
  10. FELODIPINE [Suspect]
     Indication: STRESS
     Dosage: UNK
  11. FELODIPINE [Suspect]
     Indication: ANXIETY DISORDER
  12. ALPRAZOLAM [Suspect]
     Indication: PANIC DISORDER
     Dosage: UNK
     Dates: end: 2012
  13. CENTRUM SILVER [Concomitant]
     Dosage: UNK
  14. SULFAMETHOXAZOLE /TRIMETHOPRIM [Concomitant]
     Indication: URINARY INCONTINENCE
     Dosage: UNK, 2x/day

REACTIONS (5)
  - Drug dependence [Unknown]
  - Nightmare [Unknown]
  - Insomnia [Unknown]
  - Product quality issue [Unknown]
  - Drug ineffective [Unknown]
